FAERS Safety Report 9153529 (Version 1)
Quarter: 2013Q1

REPORT INFORMATION
  Report Type: Spontaneous
  Country: US (occurrence: None)
  Receive Date: 20130306
  Receipt Date: 20130306
  Transmission Date: 20140127
  Serious: Yes (Hospitalization)
  Sender: FDA-Public Use
  Company Number: None

PATIENT
  Sex: Female
  Weight: 67.27 kg

DRUGS (3)
  1. BEVACIZUMAB (RHUMAB VEGF) (704865) [Suspect]
  2. LEUCOVORIN CALCIUM [Suspect]
  3. OXALIPLATIN [Suspect]

REACTIONS (2)
  - Faecal incontinence [None]
  - Diarrhoea [None]
